FAERS Safety Report 19883811 (Version 9)
Quarter: 2022Q1

REPORT INFORMATION
  Report Type: Report from Study
  Country: CA (occurrence: CA)
  Receive Date: 20210927
  Receipt Date: 20220308
  Transmission Date: 20220423
  Serious: Yes (Life-Threatening, Hospitalization, Other)
  Sender: FDA-Public Use
  Company Number: NVSC2014CA000763

PATIENT
  Age: 59 Year
  Sex: Female

DRUGS (38)
  1. XOLAIR [Suspect]
     Active Substance: OMALIZUMAB
     Indication: Chronic spontaneous urticaria
     Dosage: 300 MG EVERY 4 WEEKS
     Route: 058
     Dates: start: 20140929, end: 20160704
  2. XOLAIR [Suspect]
     Active Substance: OMALIZUMAB
     Indication: Psoriasis
     Dosage: UNK
     Route: 058
     Dates: start: 20141124
  3. XOLAIR [Suspect]
     Active Substance: OMALIZUMAB
     Dosage: 300 MG, EVERY 4 WEEKS
     Route: 058
     Dates: start: 20150130
  4. XOLAIR [Suspect]
     Active Substance: OMALIZUMAB
     Dosage: UNK
     Route: 058
     Dates: start: 20150316
  5. XOLAIR [Suspect]
     Active Substance: OMALIZUMAB
     Dosage: UNK
     Route: 058
     Dates: start: 20160215
  6. XOLAIR [Suspect]
     Active Substance: OMALIZUMAB
     Dosage: UNK
     Route: 058
     Dates: start: 20160314
  7. XOLAIR [Suspect]
     Active Substance: OMALIZUMAB
     Dosage: UNK
     Route: 058
     Dates: start: 20160411
  8. XOLAIR [Suspect]
     Active Substance: OMALIZUMAB
     Dosage: UNK
     Route: 058
     Dates: start: 20160509
  9. XOLAIR [Suspect]
     Active Substance: OMALIZUMAB
     Dosage: 300 MG, EVERY 4 WEEKS
     Route: 058
     Dates: start: 20160704, end: 20160704
  10. XOLAIR [Suspect]
     Active Substance: OMALIZUMAB
     Dosage: 300 MG, EVERY 4 WEEKS
     Route: 058
     Dates: start: 20170516
  11. XOLAIR [Suspect]
     Active Substance: OMALIZUMAB
     Dosage: UNK
     Route: 058
     Dates: start: 20171102
  12. XOLAIR [Suspect]
     Active Substance: OMALIZUMAB
     Dosage: UNK
     Route: 058
     Dates: start: 20171130
  13. XOLAIR [Suspect]
     Active Substance: OMALIZUMAB
     Dosage: UNK
     Route: 058
     Dates: start: 20180125, end: 20201103
  14. XOLAIR [Suspect]
     Active Substance: OMALIZUMAB
     Dosage: UNK
     Route: 065
     Dates: start: 20210511
  15. XOLAIR [Suspect]
     Active Substance: OMALIZUMAB
     Dosage: 300 MG, EVERY 4 WEEKS
     Route: 058
  16. XOLAIR [Suspect]
     Active Substance: OMALIZUMAB
     Dosage: 300 MG, EVERY 4 WEEKS
     Route: 058
  17. XOLAIR [Suspect]
     Active Substance: OMALIZUMAB
     Indication: Chronic spontaneous urticaria
     Dosage: 300 MG, EVERY 4 WEEKS
     Route: 058
     Dates: start: 20140929, end: 20160704
  18. XOLAIR [Suspect]
     Active Substance: OMALIZUMAB
     Dosage: 300 MG, EVERY 4 WEEKS
     Route: 058
     Dates: start: 20170516
  19. XOLAIR [Suspect]
     Active Substance: OMALIZUMAB
     Dosage: 300 MG, EVERY 4 WEEKS
     Route: 058
     Dates: start: 20171228
  20. XOLAIR [Suspect]
     Active Substance: OMALIZUMAB
     Dosage: 300 MG, EVERY 4 WEEKS
     Route: 058
     Dates: start: 20180517
  21. XOLAIR [Suspect]
     Active Substance: OMALIZUMAB
     Dosage: 300 MG, EVERY 4 WEEKS
     Route: 058
     Dates: start: 20180614
  22. XOLAIR [Suspect]
     Active Substance: OMALIZUMAB
     Dosage: 300 MG, EVERY 4 WEEKS
     Route: 058
     Dates: start: 20181004
  23. XOLAIR [Suspect]
     Active Substance: OMALIZUMAB
     Dosage: 300 MG, EVERY 4 WEEKS
     Route: 058
     Dates: start: 20181228
  24. XOLAIR [Suspect]
     Active Substance: OMALIZUMAB
     Dosage: 300 MG, EVERY 4 WEEKS
     Route: 058
     Dates: start: 20190321
  25. XOLAIR [Suspect]
     Active Substance: OMALIZUMAB
     Dosage: 300MG, EVERY 4 WEEKS
     Route: 058
     Dates: start: 20190613
  26. XOLAIR [Suspect]
     Active Substance: OMALIZUMAB
     Dosage: 300 MG, EVERY 4 WEEKS
     Route: 058
     Dates: start: 20191224
  27. XOLAIR [Suspect]
     Active Substance: OMALIZUMAB
     Dosage: 300 MG, EVERY 4 WEEKS
     Route: 058
     Dates: start: 20200319
  28. XOLAIR [Suspect]
     Active Substance: OMALIZUMAB
     Dosage: 300 MG, EVERY 4 WEEKS
     Route: 058
  29. XOLAIR [Suspect]
     Active Substance: OMALIZUMAB
     Dosage: UNK
     Route: 065
     Dates: start: 2021
  30. XOLAIR [Suspect]
     Active Substance: OMALIZUMAB
     Dosage: UNK
     Route: 065
     Dates: start: 20210608
  31. XOLAIR [Suspect]
     Active Substance: OMALIZUMAB
     Dosage: UNK
     Route: 058
     Dates: start: 20210820
  32. XOLAIR [Suspect]
     Active Substance: OMALIZUMAB
     Dosage: 300 MG, EVERY 4 WEEKS
     Route: 058
     Dates: start: 20220107
  33. NEORAL [Suspect]
     Active Substance: CYCLOSPORINE
     Indication: Immunodeficiency
     Dosage: 1 DOSAGE FORM, QD
     Route: 065
     Dates: start: 201801
  34. MORPHINE [Suspect]
     Active Substance: MORPHINE
     Indication: Product used for unknown indication
     Dosage: UNK
     Route: 065
  35. CYCLOSPORINE [Concomitant]
     Active Substance: CYCLOSPORINE
     Indication: Product used for unknown indication
     Dosage: UNK
     Route: 065
  36. METFORMIN HYDROCHLORIDE [Concomitant]
     Active Substance: METFORMIN HYDROCHLORIDE
     Indication: Product used for unknown indication
     Dosage: UNK
     Route: 065
  37. JANUVIA [Concomitant]
     Active Substance: SITAGLIPTIN PHOSPHATE
     Indication: Product used for unknown indication
     Dosage: 2000 MG, QD
     Route: 065
  38. JANUMET [Concomitant]
     Active Substance: METFORMIN HYDROCHLORIDE\SITAGLIPTIN PHOSPHATE
     Indication: Product used for unknown indication
     Dosage: 100-1000 MG, QD
     Route: 065

REACTIONS (60)
  - Emotional distress [Unknown]
  - Mental impairment [Unknown]
  - Urticaria [Unknown]
  - Skin lesion [Unknown]
  - Loss of consciousness [Unknown]
  - Infection susceptibility increased [Unknown]
  - Leukaemia [Unknown]
  - Thermal burns of eye [Unknown]
  - Myeloproliferative neoplasm [Unknown]
  - Neoplasm malignant [Unknown]
  - Anaphylactic shock [Unknown]
  - Erythema [Unknown]
  - Drug hypersensitivity [Unknown]
  - Influenza [Unknown]
  - Pain [Unknown]
  - Back pain [Unknown]
  - Fear [Unknown]
  - Immune system disorder [Unknown]
  - Heart rate increased [Not Recovered/Not Resolved]
  - Sputum discoloured [Recovering/Resolving]
  - Productive cough [Recovering/Resolving]
  - Blood pressure increased [Not Recovered/Not Resolved]
  - Anxiety [Unknown]
  - Crying [Unknown]
  - Liver disorder [Recovered/Resolved]
  - Faeces discoloured [Recovered/Resolved]
  - Abdominal pain [Recovered/Resolved]
  - Decreased appetite [Recovered/Resolved]
  - Insomnia [Unknown]
  - Ingrowing nail [Unknown]
  - Wound [Unknown]
  - Weight decreased [Unknown]
  - Exposure to household chemicals [Unknown]
  - Ocular hyperaemia [Unknown]
  - Malaise [Unknown]
  - Platelet count increased [Unknown]
  - Blood magnesium decreased [Unknown]
  - Electrolyte imbalance [Unknown]
  - Irritable bowel syndrome [Unknown]
  - Pain of skin [Unknown]
  - Stress [Unknown]
  - Blood creatinine increased [Recovered/Resolved]
  - Fatigue [Unknown]
  - Asthenia [Unknown]
  - Diarrhoea [Unknown]
  - Diverticulum [Unknown]
  - Cyst [Unknown]
  - Memory impairment [Unknown]
  - Injection site pain [Unknown]
  - Myalgia [Unknown]
  - Pain in extremity [Unknown]
  - Arthralgia [Unknown]
  - Weight increased [Unknown]
  - Pruritus [Unknown]
  - Skin plaque [Unknown]
  - Skin burning sensation [Unknown]
  - Inner ear disorder [Unknown]
  - Tinnitus [Unknown]
  - Dizziness [Unknown]
  - Wrong technique in product usage process [Unknown]

NARRATIVE: CASE EVENT DATE: 20140929
